FAERS Safety Report 15640145 (Version 3)
Quarter: 2019Q1

REPORT INFORMATION
  Report Type: Report from Study
  Country: US (occurrence: US)
  Receive Date: 20181120
  Receipt Date: 20190319
  Transmission Date: 20190417
  Serious: Yes (Death, Life-Threatening, Hospitalization, Other)
  Sender: FDA-Public Use
  Company Number: US-BRISTOL-MYERS SQUIBB COMPANY-BMS-2018-103084

PATIENT
  Age: 75 Year
  Sex: Female
  Weight: 64.4 kg

DRUGS (4)
  1. ZOFRAN [Concomitant]
     Active Substance: ONDANSETRON HYDROCHLORIDE
     Indication: PRODUCT USED FOR UNKNOWN INDICATION
     Route: 065
  2. NIVOLUMAB [Suspect]
     Active Substance: NIVOLUMAB
     Indication: ENDOMETRIAL ADENOCARCINOMA
     Dosage: 240 MG, UNK
     Route: 042
     Dates: start: 20180814, end: 20181001
  3. ROXICODONE [Concomitant]
     Active Substance: OXYCODONE HYDROCHLORIDE
     Indication: PRODUCT USED FOR UNKNOWN INDICATION
     Route: 065
  4. CABOZANTINIB [Suspect]
     Active Substance: CABOZANTINIB
     Indication: ENDOMETRIAL ADENOCARCINOMA
     Dosage: 460 MG, UNK
     Route: 048
     Dates: start: 20180814, end: 20181011

REACTIONS (9)
  - Death [Fatal]
  - Septic shock [Not Recovered/Not Resolved]
  - Diarrhoea [Recovering/Resolving]
  - Diverticular perforation [Not Recovered/Not Resolved]
  - Bradycardia [Unknown]
  - Atrial fibrillation [Unknown]
  - Dehydration [Recovering/Resolving]
  - Dysphagia [Recovering/Resolving]
  - Pulseless electrical activity [Unknown]

NARRATIVE: CASE EVENT DATE: 20180829
